FAERS Safety Report 6043935-9 (Version None)
Quarter: 2009Q1

REPORT INFORMATION
  Report Type: 
  Country: None (occurrence: None)
  Receive Date: 20090120
  Receipt Date: 20090115
  Transmission Date: 20090719
  Serious: Yes (Life-Threatening)
  Sender: FDA-Public Use
  Company Number: FR-ABBOTT-09P-056-0497924-00

PATIENT
  Sex: Female

DRUGS (8)
  1. SEVORANE LIQUID FOR INHALATION [Suspect]
     Indication: ANAESTHESIA
     Route: 055
     Dates: start: 20081118, end: 20081118
  2. ACETAMINOPHEN [Suspect]
     Indication: DRUG USE FOR UNKNOWN INDICATION
     Route: 042
     Dates: start: 20081118, end: 20081118
  3. SUXAMETHONIUM CHLORIDE [Suspect]
     Indication: ANAESTHESIA
     Route: 042
     Dates: start: 20081118, end: 20081118
  4. PROPOFOL [Suspect]
     Indication: ANAESTHESIA
     Route: 042
     Dates: start: 20081118, end: 20081118
  5. SUFENTANIL [Suspect]
     Indication: ANAESTHESIA
     Route: 042
     Dates: start: 20081118, end: 20081118
  6. HYDROXYZINE [Suspect]
     Indication: ANAESTHESIA
     Route: 048
     Dates: start: 20081117, end: 20081118
  7. CEFAZOLIN [Suspect]
     Indication: PROPHYLAXIS
     Route: 042
     Dates: start: 20081118, end: 20081118
  8. PATENT BLUE (NON-ABBOTT) [Suspect]
     Indication: DRUG USE FOR UNKNOWN INDICATION
     Route: 023
     Dates: start: 20081118, end: 20081118

REACTIONS (1)
  - ANAPHYLACTIC SHOCK [None]
